FAERS Safety Report 20998476 (Version 1)
Quarter: 2022Q2

REPORT INFORMATION
  Report Type: Spontaneous
  Country: GB (occurrence: GB)
  Receive Date: 20220623
  Receipt Date: 20220623
  Transmission Date: 20220721
  Serious: Yes (Other)
  Sender: FDA-Public Use
  Company Number: GB-MHRA-MED-202206211718094920-DZBHQ

PATIENT

DRUGS (1)
  1. BECLOMETHASONE [Suspect]
     Active Substance: BECLOMETHASONE
     Indication: Nasal congestion
     Dosage: UNK
     Route: 065

REACTIONS (2)
  - Haemorrhage [Recovered/Resolved]
  - Nasal dryness [Recovered/Resolved]

NARRATIVE: CASE EVENT DATE: 20210506
